FAERS Safety Report 8399462-7 (Version None)
Quarter: 2012Q2

REPORT INFORMATION
  Report Type: 
  Country: None (occurrence: None)
  Receive Date: 20120323
  Receipt Date: 20110119
  Transmission Date: 20120825
  Serious: Yes (Hospitalization)
  Sender: FDA-Public Use
  Company Number: 163-21880-11011993

PATIENT
  Age: 68 Year
  Sex: Female
  Weight: 56.7 kg

DRUGS (5)
  1. VELCADE [Concomitant]
  2. REVLIMID [Suspect]
     Indication: MULTIPLE MYELOMA
     Dosage: 10 MG, 1 IN 1 D, PO, 10 MG, 1 IN 1 D, PO
     Route: 048
     Dates: start: 20091001
  3. REVLIMID [Suspect]
     Indication: MULTIPLE MYELOMA
     Dosage: 10 MG, 1 IN 1 D, PO, 10 MG, 1 IN 1 D, PO
     Route: 048
     Dates: start: 20090909
  4. REVLIMID [Suspect]
     Indication: MULTIPLE MYELOMA
     Dosage: 10 MG, 1 IN 1 D, PO, 10 MG, 1 IN 1 D, PO
     Route: 048
     Dates: start: 20100601
  5. REVLIMID [Suspect]
     Indication: MULTIPLE MYELOMA
     Dosage: 10 MG, 1 IN 1 D, PO, 10 MG, 1 IN 1 D, PO
     Route: 048
     Dates: start: 20101101

REACTIONS (7)
  - WHITE BLOOD CELL COUNT DECREASED [None]
  - DECREASED APPETITE [None]
  - DIARRHOEA [None]
  - DEHYDRATION [None]
  - PYREXIA [None]
  - PROTEINURIA [None]
  - PLATELET COUNT DECREASED [None]
